FAERS Safety Report 18439905 (Version 1)
Quarter: 2020Q4

REPORT INFORMATION
  Report Type: Spontaneous
  Country: US (occurrence: US)
  Receive Date: 20201029
  Receipt Date: 20201029
  Transmission Date: 20210114
  Serious: No
  Sender: FDA-Public Use
  Company Number: US-SA-2020SA304995

PATIENT

DRUGS (1)
  1. PRALUENT [Suspect]
     Active Substance: ALIROCUMAB
     Indication: BLOOD CHOLESTEROL ABNORMAL
     Dosage: 75 MG, QOW
     Route: 058
     Dates: start: 20200910

REACTIONS (3)
  - Myalgia [Unknown]
  - Muscle spasms [Unknown]
  - Balance disorder [Unknown]

NARRATIVE: CASE EVENT DATE: 2020
